FAERS Safety Report 8252791-X (Version None)
Quarter: 2012Q2

REPORT INFORMATION
  Report Type: 
  Country: None (occurrence: None)
  Receive Date: 20120402
  Receipt Date: 20111209
  Transmission Date: 20120825
  Serious: No
  Sender: FDA-Public Use
  Company Number: US-ABBOTT-11P-163-0883119-00

PATIENT
  Age: 58 Year
  Sex: Male

DRUGS (3)
  1. CELEBREX [Concomitant]
     Indication: PRODUCT USED FOR UNKNOWN INDICATION
     Route: 048
  2. ANDROGEL [Suspect]
     Indication: HYPOGONADISM
     Dosage: TAKING PACKETS, RECENTLY REFILLED ON 17 OCT 2011
     Route: 061
  3. LISINOPRIL [Concomitant]
     Indication: HYPERTENSION
     Route: 048

REACTIONS (2)
  - DIZZINESS [None]
  - MOOD ALTERED [None]
